FAERS Safety Report 23474495 (Version 1)
Quarter: 2024Q1

REPORT INFORMATION
  Report Type: Spontaneous
  Country: DE (occurrence: DE)
  Receive Date: 20240204
  Receipt Date: 20240204
  Transmission Date: 20240410
  Serious: Yes (Other)
  Sender: FDA-Public Use
  Company Number: DE-MYLANLABS-2023M1035554

PATIENT
  Age: 76 Year

DRUGS (6)
  1. CABOMETYX [Suspect]
     Active Substance: CABOZANTINIB S-MALATE
     Indication: Hepatocellular carcinoma
     Dosage: UNK, CYCLE
     Route: 065
     Dates: start: 202102, end: 202105
  2. SORAFENIB [Suspect]
     Active Substance: SORAFENIB
     Indication: Hepatocellular carcinoma
     Dosage: UNK UNK, CYCLE
     Route: 065
     Dates: start: 202011, end: 202105
  3. LENVATINIB [Suspect]
     Active Substance: LENVATINIB
     Indication: Hepatocellular carcinoma
     Dosage: UNK, RECEIVED FOR 3 MONTHS, CYCLE
     Route: 065
     Dates: start: 202008, end: 202011
  4. NIVOLUMAB [Concomitant]
     Active Substance: NIVOLUMAB
     Indication: Hepatocellular carcinoma
     Dosage: RECEIVED THREE TIMES A WEEK
     Route: 065
     Dates: start: 202105
  5. NIVOLUMAB [Concomitant]
     Active Substance: NIVOLUMAB
     Dosage: 240 MG, (EVERY 0.5 WEEKS)
     Route: 065
     Dates: start: 202105
  6. IPILIMUMAB [Concomitant]
     Active Substance: IPILIMUMAB
     Indication: Hepatocellular carcinoma
     Dosage: RECEIVED TWO TIMES A WEEK
     Route: 065
     Dates: start: 202105

REACTIONS (1)
  - Drug ineffective [Unknown]
